FAERS Safety Report 18292292 (Version 1)
Quarter: 2020Q3

REPORT INFORMATION
  Report Type: Spontaneous
  Country: US (occurrence: US)
  Receive Date: 20200921
  Receipt Date: 20200921
  Transmission Date: 20201103
  Serious: Yes (Death)
  Sender: FDA-Public Use
  Company Number: US-FRESENIUS KABI-FK202009630

PATIENT
  Age: 41 Year
  Sex: Female

DRUGS (3)
  1. AZITHROMYCIN (MANUFACTURER UNKNOWN) [Suspect]
     Active Substance: AZITHROMYCIN ANHYDROUS
     Indication: COVID-19
     Dosage: UNKNOWN
     Route: 065
  2. NO DRUG NAME [Concomitant]
     Active Substance: UNSPECIFIED INGREDIENT
     Indication: PRODUCT USED FOR UNKNOWN INDICATION
     Dosage: ESTROGEN?CONTAINING ORAL CONTRACEPTIVES
     Route: 048
  3. HYDROXYCHLOROQUINE [Suspect]
     Active Substance: HYDROXYCHLOROQUINE
     Indication: COVID-19
     Dosage: UNKNOWN
     Route: 065

REACTIONS (2)
  - Cerebral venous thrombosis [Fatal]
  - Off label use [Fatal]
